FAERS Safety Report 10277115 (Version 1)
Quarter: 2014Q3

REPORT INFORMATION
  Report Type: Spontaneous
  Country: US (occurrence: US)
  Receive Date: 20140703
  Receipt Date: 20140703
  Transmission Date: 20150326
  Serious: Yes (Other)
  Sender: FDA-Public Use
  Company Number: US-BAYER-2014-097349

PATIENT
  Age: 34 Year
  Sex: Female

DRUGS (5)
  1. LUPRON [Suspect]
     Active Substance: LEUPROLIDE ACETATE
     Indication: ENDOMETRIOSIS
     Dosage: UNK (11.25 MG,1 IN 3 M)
     Route: 065
     Dates: start: 201302, end: 201307
  2. NSAIDS [Suspect]
     Active Substance: UNSPECIFIED INGREDIENT
  3. CIPRO [Suspect]
     Active Substance: CIPROFLOXACIN HYDROCHLORIDE
     Indication: PRODUCT USED FOR UNKNOWN INDICATION
     Dosage: 1 DF, UNK
     Route: 065
  4. VITAMINS NOS [Concomitant]
     Active Substance: VITAMINS
     Dosage: 500 MG, QD
  5. FERROUS SULFATE [Concomitant]
     Active Substance: FERROUS SULFATE\FERROUS SULFATE, DRIED
     Dosage: 325 MG, QD

REACTIONS (3)
  - Menorrhagia [None]
  - Pelvic pain [None]
  - Renal failure acute [None]

NARRATIVE: CASE EVENT DATE: 20130831
